APPROVED DRUG PRODUCT: BACTERIOSTATIC SODIUM CHLORIDE 0.9% IN PLASTIC CONTAINER
Active Ingredient: SODIUM CHLORIDE
Strength: 90MG/10ML (9MG/ML)
Dosage Form/Route: SOLUTION;INJECTION
Application: A088911 | Product #002 | TE Code: AP
Applicant: FRESENIUS KABI USA LLC
Approved: May 17, 1985 | RLD: No | RS: No | Type: RX